FAERS Safety Report 8077862-2 (Version None)
Quarter: 2012Q1

REPORT INFORMATION
  Report Type: 
  Country: None (occurrence: None)
  Receive Date: 20120127
  Receipt Date: 20120123
  Transmission Date: 20120608
  Serious: Yes (Other)
  Sender: FDA-Public Use
  Company Number: BE-ABBOTT-09P-062-0563991-00

PATIENT
  Sex: Male
  Weight: 68 kg

DRUGS (7)
  1. HUMIRA [Suspect]
     Indication: RHEUMATOID ARTHRITIS
     Route: 058
     Dates: start: 20040809, end: 20081218
  2. FOLIC ACID [Concomitant]
     Indication: VITAMIN SUPPLEMENTATION
     Dates: start: 20030701
  3. METHOTREXATE [Concomitant]
     Indication: RHEUMATOID ARTHRITIS
     Dates: start: 20030710
  4. COMMERCIAL HUMIRA [Concomitant]
     Indication: RHEUMATOID ARTHRITIS
     Route: 058
     Dates: start: 20040726
  5. OMEPRAZOLE [Concomitant]
     Indication: ABDOMINAL PAIN UPPER
     Dates: start: 20051201
  6. PENTOIL [Concomitant]
     Indication: HYPERTENSION
     Dates: start: 20010502
  7. MOBIC [Concomitant]
     Indication: RHEUMATOID ARTHRITIS
     Dates: start: 20050901

REACTIONS (1)
  - AMYOTROPHIC LATERAL SCLEROSIS [None]
